FAERS Safety Report 12231222 (Version 1)
Quarter: 2016Q2

REPORT INFORMATION
  Report Type: Spontaneous
  Country: US (occurrence: US)
  Receive Date: 20160401
  Receipt Date: 20160401
  Transmission Date: 20160815
  Serious: Yes (Other)
  Sender: FDA-Public Use
  Company Number: US-HOSPIRA-3230144

PATIENT
  Sex: Male

DRUGS (6)
  1. LIDODERM [Concomitant]
     Active Substance: LIDOCAINE
     Indication: FLAIL CHEST
  2. OFIRMEV [Concomitant]
     Active Substance: ACETAMINOPHEN
     Indication: FLAIL CHEST
  3. OXYGEN. [Concomitant]
     Active Substance: OXYGEN
     Indication: FLAIL CHEST
  4. ROPIVACAINE HYDROCHLORIDE. [Suspect]
     Active Substance: ROPIVACAINE HYDROCHLORIDE
     Indication: PAIN MANAGEMENT
     Dosage: STRENGTH: 0.2%, 6 ML/HR
     Route: 008
  5. MORPHINE [Concomitant]
     Active Substance: MORPHINE
     Indication: FLAIL CHEST
     Route: 042
  6. ROPIVACAINE HYDROCHLORIDE. [Suspect]
     Active Substance: ROPIVACAINE HYDROCHLORIDE
     Indication: PAIN MANAGEMENT
     Dosage: STRENGTH: 0.5%
     Route: 008

REACTIONS (2)
  - Rash macular [Unknown]
  - Rash erythematous [Unknown]
